FAERS Safety Report 5879848-2 (Version None)
Quarter: 2008Q3

REPORT INFORMATION
  Report Type: 
  Country: None (occurrence: None)
  Receive Date: 20080912
  Receipt Date: 20080902
  Transmission Date: 20090109
  Serious: Yes (Hospitalization, Other)
  Sender: FDA-Public Use
  Company Number: US-ELI_LILLY_AND_COMPANY-US200808001731

PATIENT
  Sex: Female
  Weight: 48.073 kg

DRUGS (4)
  1. FORTEO [Suspect]
     Indication: OSTEOPOROSIS
     Dosage: 20 UG, DAILY (1/D)
     Dates: start: 20070507
  2. CALCIUM [Concomitant]
     Dosage: 1.5 G, DAILY (1/D)
  3. VITAMIN D [Concomitant]
     Dosage: 400 IU, DAILY (1/D)
  4. DETROL /USA/ [Concomitant]
     Dosage: 4 MG, DAILY (1/D)

REACTIONS (2)
  - FALL [None]
  - HIP FRACTURE [None]
